FAERS Safety Report 24732067 (Version 3)
Quarter: 2025Q2

REPORT INFORMATION
  Report Type: Report from Study
  Country: BE (occurrence: BE)
  Receive Date: 20241213
  Receipt Date: 20250422
  Transmission Date: 20250717
  Serious: Yes (Hospitalization)
  Sender: SANOFI AVENTIS
  Company Number: BE-SA-SAC20240329000143

PATIENT
  Age: 35 Year
  Sex: Female
  Weight: 52 kg

DRUGS (2)
  1. ALEMTUZUMAB [Suspect]
     Active Substance: ALEMTUZUMAB
     Indication: Relapsing multiple sclerosis
     Dosage: 12 MG, QD
     Route: 041
     Dates: start: 20180220, end: 20180224
  2. ALEMTUZUMAB [Suspect]
     Active Substance: ALEMTUZUMAB
     Dosage: 12 MG, QD
     Route: 041
     Dates: start: 20190227, end: 20190301

REACTIONS (3)
  - Endocrine ophthalmopathy [Not Recovered/Not Resolved]
  - Diplopia [Not Recovered/Not Resolved]
  - Endocrine ophthalmopathy [Not Recovered/Not Resolved]

NARRATIVE: CASE EVENT DATE: 20221208
